FAERS Safety Report 14996582 (Version 2)
Quarter: 2018Q4

REPORT INFORMATION
  Report Type: Report from Study
  Country: FR (occurrence: FR)
  Receive Date: 20180611
  Receipt Date: 20181101
  Transmission Date: 20190204
  Serious: Yes (Death, Hospitalization, Other)
  Sender: FDA-Public Use
  Company Number: FR-JAZZ-2018-FR-009176

PATIENT

DRUGS (1)
  1. DEFITELIO [Suspect]
     Active Substance: DEFIBROTIDE SODIUM
     Indication: VENOOCCLUSIVE DISEASE
     Dosage: 21 MG/KG, QD
     Route: 042
     Dates: start: 20170616, end: 20170717

REACTIONS (7)
  - Respiratory tract infection [Fatal]
  - Acute respiratory distress syndrome [Fatal]
  - Pulmonary toxicity [Fatal]
  - Graft versus host disease in gastrointestinal tract [Fatal]
  - Cholestasis [Recovered/Resolved]
  - Multiple organ dysfunction syndrome [Unknown]
  - Adenovirus infection [Recovered/Resolved]

NARRATIVE: CASE EVENT DATE: 20170906
